FAERS Safety Report 4955219-8 (Version None)
Quarter: 2006Q1

REPORT INFORMATION
  Report Type: 
  Country: None (occurrence: None)
  Receive Date: 20060328
  Receipt Date: 20050622
  Transmission Date: 20060701
  Serious: Yes (Other)
  Sender: FDA-Public Use
  Company Number: PHFR2005GB02252

PATIENT
  Age: 28 Year
  Sex: Female
  Weight: 51 kg

DRUGS (6)
  1. SIMULECT [Suspect]
     Indication: RENAL TRANSPLANT
     Dosage: 20MG PER DAY
     Route: 042
     Dates: start: 20050618, end: 20050618
  2. TACROLIMUS [Concomitant]
     Indication: IMMUNOSUPPRESSION
  3. AZATHIOPRINE [Concomitant]
     Route: 065
  4. FOLIC ACID [Concomitant]
  5. ASPIRIN [Concomitant]
  6. DALTEPARIN [Concomitant]
     Route: 058

REACTIONS (4)
  - DRUG EXPOSURE DURING PREGNANCY [None]
  - INDUCED LABOUR [None]
  - RENAL IMPAIRMENT [None]
  - URINE OUTPUT DECREASED [None]
